FAERS Safety Report 8275443-9 (Version None)
Quarter: 2012Q2

REPORT INFORMATION
  Report Type: 
  Country: None (occurrence: None)
  Receive Date: 20120411
  Receipt Date: 20120330
  Transmission Date: 20120825
  Serious: Yes (Hospitalization)
  Sender: FDA-Public Use
  Company Number: US-BAXTER-2012BAX000198

PATIENT
  Sex: Female

DRUGS (6)
  1. DIANEAL [Suspect]
     Indication: PERITONEAL DIALYSIS
     Route: 033
     Dates: start: 20100129
  2. DIANEAL [Suspect]
     Route: 033
     Dates: start: 20100129
  3. DIANEAL [Suspect]
     Route: 033
     Dates: start: 20100129
  4. DIANEAL [Suspect]
     Route: 033
     Dates: start: 20120308
  5. DIANEAL [Suspect]
     Route: 033
     Dates: start: 20120308
  6. DIANEAL [Suspect]
     Route: 033
     Dates: start: 20120308

REACTIONS (1)
  - CARDIAC FAILURE CHRONIC [None]
